FAERS Safety Report 20724414 (Version 1)
Quarter: 2022Q2

REPORT INFORMATION
  Report Type: Spontaneous
  Country: US (occurrence: None)
  Receive Date: 20220418
  Receipt Date: 20220418
  Transmission Date: 20220721
  Serious: No
  Sender: FDA-Public Use
  Company Number: None

PATIENT
  Age: 69 Year
  Sex: Female
  Weight: 47.6 kg

DRUGS (1)
  1. BEBTELOVIMAB [Suspect]
     Active Substance: BEBTELOVIMAB
     Indication: COVID-19 treatment
     Dosage: FREQUENCY : ONCE;?
     Route: 042
     Dates: start: 20220411

REACTIONS (4)
  - Pain [None]
  - Paraesthesia [None]
  - Pain in extremity [None]
  - Infusion related reaction [None]

NARRATIVE: CASE EVENT DATE: 20220411
